FAERS Safety Report 5133335-8 (Version None)
Quarter: 2006Q4

REPORT INFORMATION
  Report Type: 
  Country: None (occurrence: None)
  Receive Date: 20060831
  Receipt Date: 20060711
  Transmission Date: 20070319
  Serious: No
  Sender: FDA-Public Use
  Company Number: 2006-BP-06892BP

PATIENT
  Sex: Male

DRUGS (8)
  1. SPIRIVA [Suspect]
     Indication: CHRONIC OBSTRUCTIVE PULMONARY DISEASE
     Dosage: 18 MCG (18 MCG),IH
     Dates: start: 20060601, end: 20060614
  2. FORADYL [Concomitant]
  3. WARFARIN SODIUM [Concomitant]
  4. COMBIVENT (COMBIVENT /01261001/) [Concomitant]
  5. DILTIAZEM [Concomitant]
  6. ATROVENT [Concomitant]
  7. ALBUTEROL [Concomitant]
  8. BENADRYL [Concomitant]

REACTIONS (1)
  - DYSPNOEA [None]
